FAERS Safety Report 22196012 (Version 1)
Quarter: 2023Q2

REPORT INFORMATION
  Report Type: Spontaneous
  Country: JP (occurrence: JP)
  Receive Date: 20230411
  Receipt Date: 20230411
  Transmission Date: 20230722
  Serious: Yes (Other)
  Sender: FDA-Public Use
  Company Number: JP-JNJFOC-20211214573

PATIENT
  Age: 5 Decade
  Sex: Male

DRUGS (14)
  1. INTELENCE [Suspect]
     Active Substance: ETRAVIRINE
     Indication: HIV infection
     Dosage: 100MGX4T
     Route: 048
     Dates: start: 20090901, end: 20161229
  2. ZIDOVUDINE [Suspect]
     Active Substance: ZIDOVUDINE
     Indication: HIV infection
     Route: 048
     Dates: start: 19970813
  3. LAMIVUDINE [Suspect]
     Active Substance: LAMIVUDINE
     Indication: HIV infection
     Dosage: DOSE UNKNOWN
     Route: 048
     Dates: start: 19971001
  4. GANCICLOVIR [Suspect]
     Active Substance: GANCICLOVIR
     Indication: Product used for unknown indication
     Dosage: DOSE UNKNOWN
     Route: 065
  5. FOSCARNET SODIUM [Suspect]
     Active Substance: FOSCARNET SODIUM
     Indication: Product used for unknown indication
     Dosage: DOSE UNKNOWN
     Route: 065
  6. PREZISTA [Concomitant]
     Active Substance: DARUNAVIR ETHANOLATE
     Indication: HIV infection
     Dosage: 300MGX4T
     Route: 048
     Dates: start: 20080214, end: 20151202
  7. PREZISTA [Concomitant]
     Active Substance: DARUNAVIR ETHANOLATE
     Indication: HIV infection
     Dosage: 600MGX2T
     Route: 048
     Dates: start: 20151203, end: 20161229
  8. EDURANT [Concomitant]
     Active Substance: RILPIVIRINE HYDROCHLORIDE
     Indication: HIV infection
     Route: 048
     Dates: start: 20161229
  9. TIVICAY [Concomitant]
     Active Substance: DOLUTEGRAVIR SODIUM
     Indication: HIV infection
     Dosage: 50MGX2T
     Route: 048
     Dates: start: 20161229
  10. MARAVIROC [Concomitant]
     Active Substance: MARAVIROC
     Indication: HIV infection
     Dosage: DOSE UNKNOWN
     Route: 048
     Dates: start: 20100501
  11. MARAVIROC [Concomitant]
     Active Substance: MARAVIROC
     Indication: HIV infection
     Route: 048
     Dates: start: 20161229
  12. NELFINAVIR MESYLATE [Concomitant]
     Active Substance: NELFINAVIR MESYLATE
     Indication: HIV infection
     Dosage: DOSE UNKNOWN
     Route: 048
     Dates: start: 19971001
  13. RALTEGRAVIR POTASSIUM [Concomitant]
     Active Substance: RALTEGRAVIR POTASSIUM
     Indication: HIV infection
     Dosage: DOSE UNKNOWN
     Route: 048
     Dates: start: 20100501
  14. RITONAVIR [Concomitant]
     Active Substance: RITONAVIR
     Indication: HIV infection
     Dosage: DOSE UNKNOWN
     Route: 048
     Dates: start: 20100501

REACTIONS (1)
  - Chronic kidney disease [Not Recovered/Not Resolved]

NARRATIVE: CASE EVENT DATE: 20161226
